FAERS Safety Report 24356805 (Version 3)
Quarter: 2024Q4

REPORT INFORMATION
  Report Type: Report from Study
  Country: US (occurrence: US)
  Receive Date: 20240924
  Receipt Date: 20241104
  Transmission Date: 20250115
  Serious: Yes (Hospitalization)
  Sender: ALNYLAM PHARMACEUTICALS
  Company Number: US-ALNYLAM PHARMACEUTICALS, INC.-ALN-2024-005227

PATIENT

DRUGS (1)
  1. AMVUTTRA [Suspect]
     Active Substance: VUTRISIRAN
     Indication: Familial amyloidosis
     Dosage: UNK
     Route: 065
     Dates: start: 20230901, end: 20230901

REACTIONS (2)
  - Hypervolaemia [Unknown]
  - Intentional dose omission [Unknown]
